FAERS Safety Report 5160627-9 (Version None)
Quarter: 2006Q4

REPORT INFORMATION
  Report Type: 
  Country: None (occurrence: None)
  Receive Date: 20061121
  Receipt Date: 20061108
  Transmission Date: 20070319
  Serious: Yes (Death, Other)
  Sender: FDA-Public Use
  Company Number: 2006139068

PATIENT
  Age: 67 Year
  Sex: Male
  Weight: 58.0604 kg

DRUGS (8)
  1. SUTENT [Suspect]
     Indication: RENAL CELL CARCINOMA STAGE UNSPECIFIED
     Dosage: 37.5 MG (37.5 MG, QD - EVERY DAY), ORAL
     Route: 048
     Dates: start: 20061030
  2. IRON (IRON) [Concomitant]
  3. LASIX [Concomitant]
  4. POTASSIUM CHLORIDE [Concomitant]
  5. TAMBOCOR [Concomitant]
  6. MAGNESIUM (MAGNESIUM) [Concomitant]
  7. ALBUTEROL [Concomitant]
  8. ATIVAN [Concomitant]

REACTIONS (1)
  - DEATH [None]
